FAERS Safety Report 7931983-0 (Version None)
Quarter: 2011Q4

REPORT INFORMATION
  Report Type: 
  Country: None (occurrence: None)
  Receive Date: 20111121
  Receipt Date: 20110513
  Transmission Date: 20120403
  Serious: No
  Sender: FDA-Public Use
  Company Number: US-MUTUAL PHARMACEUTICAL COMPANY, INC.-TLMT20110001

PATIENT
  Age: 66 Year
  Sex: Female

DRUGS (1)
  1. TOLMETIN SODIUM [Suspect]
     Indication: RHEUMATOID ARTHRITIS
     Route: 048

REACTIONS (3)
  - SPIDER VEIN [None]
  - VARICOSE VEIN [None]
  - SKIN DISCOLOURATION [None]
